FAERS Safety Report 7403650-3 (Version None)
Quarter: 2011Q2

REPORT INFORMATION
  Report Type: 
  Country: None (occurrence: None)
  Receive Date: 20110408
  Receipt Date: 20110328
  Transmission Date: 20111010
  Serious: Yes (Other)
  Sender: FDA-Public Use
  Company Number: PHHY2011FR27089

PATIENT
  Age: 76 Year
  Sex: Male

DRUGS (1)
  1. ZOLEDRONIC ACID [Suspect]
     Indication: HYPERCALCAEMIA OF MALIGNANCY
     Dosage: 4 MG, UNK
     Dates: start: 20080101

REACTIONS (9)
  - BACTERIAL INFECTION [None]
  - BONE DISORDER [None]
  - OSTEONECROSIS OF JAW [None]
  - INFLAMMATORY PAIN [None]
  - NODULE [None]
  - OSTEITIS DEFORMANS [None]
  - SAPHO SYNDROME [None]
  - OSTEITIS [None]
  - NEOPLASM MALIGNANT [None]
